FAERS Safety Report 11537842 (Version 1)
Quarter: 2015Q3

REPORT INFORMATION
  Report Type: Spontaneous
  Country: CA (occurrence: CA)
  Receive Date: 20150922
  Receipt Date: 20150922
  Transmission Date: 20151125
  Serious: Yes (Other)
  Sender: FDA-Public Use
  Company Number: CA-VALIDUS PHARMACEUTICALS LLC-CA-2015VAL000578

PATIENT

DRUGS (7)
  1. ROCALTROL [Suspect]
     Active Substance: CALCITRIOL
     Indication: OSTEOPOROSIS
  2. CELEXA [Concomitant]
     Active Substance: CITALOPRAM HYDROBROMIDE
     Dosage: UNK
  3. INDAPAMIDE. [Concomitant]
     Active Substance: INDAPAMIDE
     Dosage: UNK
  4. D-FORTE [Concomitant]
     Dosage: UNK
  5. ATACAND [Concomitant]
     Active Substance: CANDESARTAN CILEXETIL
     Dosage: UNK
  6. ROCALTROL [Suspect]
     Active Substance: CALCITRIOL
     Indication: VITAMIN D DECREASED
     Dosage: (0.5 ?G, 1 IN 1 D)
     Route: 048
     Dates: start: 2012, end: 2012
  7. BEZALIP [Concomitant]
     Active Substance: BEZAFIBRATE
     Dosage: UNK

REACTIONS (2)
  - Pulmonary oedema [Not Recovered/Not Resolved]
  - Generalised oedema [Recovered/Resolved]

NARRATIVE: CASE EVENT DATE: 2012
